FAERS Safety Report 10230609 (Version 2)
Quarter: 2014Q3

REPORT INFORMATION
  Report Type: Spontaneous
  Country: US (occurrence: US)
  Receive Date: 20140611
  Receipt Date: 20140912
  Transmission Date: 20150326
  Serious: No
  Sender: FDA-Public Use
  Company Number: US-INCYTE CORPORATION-2014IN001279

PATIENT
  Age: 40 Year
  Sex: Female

DRUGS (9)
  1. HYDROXYZINE [Concomitant]
     Active Substance: HYDROXYZINE\HYDROXYZINE HYDROCHLORIDE
  2. JAKAFI [Suspect]
     Active Substance: RUXOLITINIB
     Indication: MYELOFIBROSIS
     Dosage: 20 MG, BID
     Route: 048
     Dates: start: 20140328
  3. CITALOPRAM [Concomitant]
     Active Substance: CITALOPRAM HYDROBROMIDE
  4. LORAZEPAM. [Concomitant]
     Active Substance: LORAZEPAM
  5. VITAMIN C [Concomitant]
     Active Substance: ASCORBIC ACID
  6. ASPIRIN. [Concomitant]
     Active Substance: ASPIRIN
  7. PERCOCET [Concomitant]
     Active Substance: ACETAMINOPHEN\OXYCODONE HYDROCHLORIDE
  8. HYDROMORPHONE [Concomitant]
     Active Substance: HYDROMORPHONE
  9. ALBUTEROL                          /00139501/ [Concomitant]
     Active Substance: ALBUTEROL

REACTIONS (9)
  - Chills [Unknown]
  - Constipation [Unknown]
  - Abdominal pain [Unknown]
  - Abdominal discomfort [Unknown]
  - Pain in extremity [Unknown]
  - Pain [Unknown]
  - Nausea [Unknown]
  - Decreased appetite [Unknown]
  - Headache [Unknown]

NARRATIVE: CASE EVENT DATE: 20140418
